FAERS Safety Report 7596704-2 (Version None)
Quarter: 2011Q3

REPORT INFORMATION
  Report Type: 
  Country: None (occurrence: None)
  Receive Date: 20110708
  Receipt Date: 20110628
  Transmission Date: 20111222
  Serious: Yes (Death)
  Sender: FDA-Public Use
  Company Number: DE-CELGENEUS-062-50794-10101263

PATIENT
  Age: 79 Year
  Sex: Male

DRUGS (2)
  1. HYDROXYUREA [Concomitant]
     Route: 065
  2. VIDAZA [Suspect]
     Route: 058
     Dates: start: 20081016, end: 20100817

REACTIONS (1)
  - ACUTE MYELOID LEUKAEMIA [None]
